FAERS Safety Report 7823498-5 (Version None)
Quarter: 2011Q4

REPORT INFORMATION
  Report Type: 
  Country: None (occurrence: None)
  Receive Date: 20111019
  Receipt Date: 20111014
  Transmission Date: 20120403
  Serious: Yes (Hospitalization, Other)
  Sender: FDA-Public Use
  Company Number: GB-PFIZER INC-2011194663

PATIENT
  Age: 76 Year
  Sex: Male

DRUGS (9)
  1. MIRTAZAPINE [Interacting]
     Dosage: 15 MG, UNK
     Dates: start: 20050101
  2. MIRTAZAPINE [Interacting]
     Dosage: 60 MG, UNK
  3. AMLODIPINE [Concomitant]
     Indication: HYPERTENSION
     Dosage: 5 MG, UNK
  4. BENDROFLUAZIDE [Interacting]
     Indication: HYPERTENSION
     Dosage: UNK
  5. MIRTAZAPINE [Interacting]
     Dosage: 30 MG, UNK
  6. VENLAFAXINE HCL [Suspect]
     Dosage: 75 MG, UNK
  7. MIRTAZAPINE [Interacting]
     Dosage: 45 MG, UNK
  8. VALSARTAN [Concomitant]
     Indication: HYPERTENSION
     Dosage: UNK
  9. LORAZEPAM [Concomitant]
     Dosage: 1 MG, UNK

REACTIONS (5)
  - SYNCOPE [None]
  - HEAD INJURY [None]
  - DRUG INTERACTION [None]
  - URINARY HESITATION [None]
  - BLOOD SODIUM DECREASED [None]
